FAERS Safety Report 6695040-6 (Version None)
Quarter: 2010Q2

REPORT INFORMATION
  Report Type: 
  Country: None (occurrence: None)
  Receive Date: 20100423
  Receipt Date: 20100416
  Transmission Date: 20101027
  Serious: Yes (Death, Other)
  Sender: FDA-Public Use
  Company Number: FR-ROCHE-586902

PATIENT
  Age: 62 Year
  Sex: Female

DRUGS (3)
  1. AVASTIN [Suspect]
     Dosage: ON D1 AND D15 OVER A CYCLE OF 28 CYCLE
     Route: 065
  2. PACLITAXEL [Suspect]
     Dosage: ON D1.D8 AND D15 OVER A CYCLE OF 28 DAYS
     Route: 065
  3. LOW MOLECULAR WEIGHT HEPARIN [Concomitant]
     Indication: DEEP VEIN THROMBOSIS

REACTIONS (4)
  - INTESTINAL PERFORATION [None]
  - METASTASES TO PERITONEUM [None]
  - PERITONITIS [None]
  - SEPTIC SHOCK [None]
